FAERS Safety Report 5255191-X (Version None)
Quarter: 2007Q1

REPORT INFORMATION
  Report Type: 
  Country: None (occurrence: None)
  Receive Date: 20070305
  Receipt Date: 20070301
  Transmission Date: 20070707
  Serious: Yes (Death, Life-Threatening, Other)
  Sender: FDA-Public Use
  Company Number: PHBS2007JP01966

PATIENT
  Age: 46 Year
  Sex: Male
  Weight: 58 kg

DRUGS (5)
  1. RADIATION [Concomitant]
  2. METHOTREXATE [Concomitant]
     Indication: BONE MARROW TRANSPLANT
     Route: 065
  3. SANDIMMUNE [Suspect]
     Indication: BONE MARROW TRANSPLANT
     Dosage: 180 MG/DAY
     Route: 042
     Dates: start: 20030624, end: 20030722
  4. SANDIMMUNE [Suspect]
     Dosage: 1 MG/KG/D
     Route: 042
     Dates: start: 20030225, end: 20030408
  5. NEORAL [Suspect]
     Indication: BONE MARROW TRANSPLANT
     Route: 048
     Dates: start: 20030409, end: 20030416

REACTIONS (9)
  - ACUTE GRAFT VERSUS HOST DISEASE IN INTESTINE [None]
  - COLITIS [None]
  - DIARRHOEA [None]
  - GRAFT VERSUS HOST DISEASE [None]
  - HAEMATOCHEZIA [None]
  - OPPORTUNISTIC INFECTION [None]
  - PNEUMOCYSTIS JIROVECI PNEUMONIA [None]
  - PYREXIA [None]
  - RASH [None]
